FAERS Safety Report 6569635-4 (Version None)
Quarter: 2010Q1

REPORT INFORMATION
  Report Type: 
  Country: None (occurrence: None)
  Receive Date: 20100129
  Receipt Date: 20100118
  Transmission Date: 20100710
  Serious: Yes (Death)
  Sender: FDA-Public Use
  Company Number: DSA_42420_2010

PATIENT
  Age: 36 Year
  Sex: Female

DRUGS (4)
  1. BUPROPION HCL ER 300 MG (NOT SPECIFIED) [Suspect]
     Dosage: (21 DF 1X, ORAL)
     Route: 048
  2. SERTRALINE HCL [Suspect]
     Dosage: (21 DF 1X, ORAL)
     Route: 048
  3. COCAINE [Suspect]
     Dosage: (ORAL)
     Route: 048
  4. CYCLOBENZAPRINE [Suspect]
     Dosage: (21 DF 1X, ORAL)
     Route: 048

REACTIONS (12)
  - AGGRESSION [None]
  - AGITATION [None]
  - BLOOD CREATINE PHOSPHOKINASE INCREASED [None]
  - BLOOD GLUCOSE DECREASED [None]
  - CARDIAC ARREST [None]
  - CONVULSION [None]
  - DRUG SCREEN POSITIVE [None]
  - HEART RATE INCREASED [None]
  - MULTIPLE DRUG OVERDOSE [None]
  - POISONING [None]
  - SOMNOLENCE [None]
  - TREMOR [None]
